FAERS Safety Report 21254397 (Version 2)
Quarter: 2022Q3

REPORT INFORMATION
  Report Type: Spontaneous
  Country: CN (occurrence: CN)
  Receive Date: 20220825
  Receipt Date: 20220829
  Transmission Date: 20221027
  Serious: Yes (Hospitalization, Other)
  Sender: FDA-Public Use
  Company Number: CN-MLMSERVICE-20220808-3726244-1

PATIENT
  Age: 66 Year
  Sex: Male

DRUGS (5)
  1. METHYLPREDNISOLONE [Suspect]
     Active Substance: METHYLPREDNISOLONE
     Indication: Pemphigus
     Dosage: UNK (FOR THE PAST 9 YEARS)
  2. PREDNISOLONE [Suspect]
     Active Substance: PREDNISOLONE
     Indication: Pemphigus
     Dosage: UNK (FOR THE PAST 9 YEARS)
  3. METHOTREXATE [Concomitant]
     Active Substance: METHOTREXATE
     Indication: Pemphigus
     Dosage: UNK
  4. THALIDOMIDE [Concomitant]
     Active Substance: THALIDOMIDE
     Indication: Pemphigus
     Dosage: UNK
  5. CYCLOSPORINE [Concomitant]
     Active Substance: CYCLOSPORINE
     Indication: Pemphigus
     Dosage: UNK

REACTIONS (3)
  - Pulmonary tuberculosis [Recovering/Resolving]
  - Pneumocystis jirovecii pneumonia [Recovering/Resolving]
  - Respiratory failure [Recovering/Resolving]
